FAERS Safety Report 8852619 (Version 1)
Quarter: 2012Q4

REPORT INFORMATION
  Report Type: 
  Country: GR (occurrence: GR)
  Receive Date: 20121022
  Receipt Date: 20121022
  Transmission Date: 20130627
  Serious: Yes (Death)
  Sender: FDA-Public Use
  Company Number: PHHY2012GR094054

PATIENT
  Age: 20 Year

DRUGS (5)
  1. CICLOSPORIN [Suspect]
     Indication: STEM CELL TRANSPLANT
     Dosage: 5 mg/kg, UNK
  2. ALEMTUZUMAB [Suspect]
  3. FLUDARABINE [Concomitant]
  4. THIOTEPA [Concomitant]
  5. CARMUSTINE [Concomitant]

REACTIONS (3)
  - Acute graft versus host disease in liver [Fatal]
  - Acute graft versus host disease in intestine [Fatal]
  - Infection [Fatal]
